FAERS Safety Report 5273660-3 (Version None)
Quarter: 2007Q1

REPORT INFORMATION
  Report Type: 
  Country: None (occurrence: None)
  Receive Date: 20070321
  Receipt Date: 20070321
  Transmission Date: 20070707
  Serious: Yes (Death)
  Sender: FDA-Public Use
  Company Number: None

PATIENT
  Age: 20 Year
  Sex: Male
  Weight: 75 kg

DRUGS (1)
  1. DROPERIDOL [Suspect]
     Indication: NAUSEA
     Dosage: 2.5 MG ONCE IV BOLUS 1.25 MG ONCE IV BOLUS
     Route: 040
     Dates: start: 20050618, end: 20050618

REACTIONS (4)
  - BLOOD MAGNESIUM ABNORMAL [None]
  - CARDIO-RESPIRATORY ARREST [None]
  - VENTRICLE RUPTURE [None]
  - VENTRICULAR TACHYCARDIA [None]
